FAERS Safety Report 5069332-0 (Version None)
Quarter: 2006Q3

REPORT INFORMATION
  Report Type: 
  Country: None (occurrence: None)
  Receive Date: 20060803
  Receipt Date: 20060724
  Transmission Date: 20061208
  Serious: Yes (Other)
  Sender: FDA-Public Use
  Company Number: JP-BRISTOL-MYERS SQUIBB COMPANY-13461157

PATIENT
  Age: 68 Year
  Sex: Male

DRUGS (2)
  1. GATIFLOXACIN [Suspect]
     Indication: INFECTION PROPHYLAXIS
     Route: 048
     Dates: start: 20060630, end: 20060719
  2. TRANSAMIN [Suspect]
     Route: 048

REACTIONS (1)
  - HYPERGLYCAEMIA [None]
